FAERS Safety Report 6526464-5 (Version None)
Quarter: 2009Q4

REPORT INFORMATION
  Report Type: 
  Country: None (occurrence: None)
  Receive Date: 20091222
  Receipt Date: 20091209
  Transmission Date: 20100525
  Serious: Yes (Death)
  Sender: FDA-Public Use
  Company Number: B0617588A

PATIENT
  Age: 13 Year
  Sex: Male

DRUGS (11)
  1. TACROLIMUS [Suspect]
     Indication: IMMUNOSUPPRESSION
  2. PREDNISONE [Suspect]
     Indication: IMMUNOSUPPRESSION
  3. MYCOPHENOLATE MEFETIL [Suspect]
     Indication: IMMUNOSUPPRESSION
  4. RITUXAN [Suspect]
     Indication: IMMUNOSUPPRESSION
  5. BECONASE [Suspect]
     Indication: IMMUNOSUPPRESSION
  6. BUDESONIDE [Suspect]
     Indication: IMMUNOSUPPRESSION
  7. RADIOTHERAPY [Concomitant]
  8. AMLODIPINE [Concomitant]
  9. ENALAPRIL [Concomitant]
  10. CLONIDINE [Concomitant]
  11. LOSARTAN POTASSIUM [Concomitant]

REACTIONS (8)
  - DRUG INEFFECTIVE [None]
  - EVANS SYNDROME [None]
  - FUNGAL INFECTION [None]
  - HYPERTENSION [None]
  - OEDEMA [None]
  - POLYOMAVIRUS-ASSOCIATED NEPHROPATHY [None]
  - REFUSAL OF TREATMENT BY PATIENT [None]
  - RENAL FAILURE [None]
